FAERS Safety Report 5280718-1 (Version None)
Quarter: 2007Q1

REPORT INFORMATION
  Report Type: 
  Country: None (occurrence: None)
  Receive Date: 20070329
  Receipt Date: 20070319
  Transmission Date: 20070707
  Serious: Yes (Other)
  Sender: FDA-Public Use
  Company Number: DE-ABBOTT-07P-062-0362540-00

PATIENT
  Age: 11 Year
  Sex: Male

DRUGS (2)
  1. VALPROIC ACID [Suspect]
     Indication: TRISOMY 13
     Route: 065
  2. PHENOBARBITAL TAB [Concomitant]
     Indication: CONVULSION PROPHYLAXIS
     Route: 065

REACTIONS (2)
  - DIABETES MELLITUS [None]
  - PANCREATITIS ACUTE [None]
